FAERS Safety Report 24238740 (Version 4)
Quarter: 2024Q4

REPORT INFORMATION
  Report Type: Spontaneous
  Country: US (occurrence: US)
  Receive Date: 20240822
  Receipt Date: 20241017
  Transmission Date: 20250115
  Serious: No
  Sender: PFIZER
  Company Number: US-PFIZER INC-PV202400108749

PATIENT
  Age: 31 Year
  Sex: Male
  Weight: 70.295 kg

DRUGS (1)
  1. CIBINQO [Suspect]
     Active Substance: ABROCITINIB
     Indication: Dermatitis atopic
     Dosage: 100 MG, DAILY
     Route: 048
     Dates: start: 20240821

REACTIONS (7)
  - Sleep disorder [Not Recovered/Not Resolved]
  - Attention deficit hyperactivity disorder [Not Recovered/Not Resolved]
  - Infection [Recovered/Resolved]
  - Diarrhoea [Not Recovered/Not Resolved]
  - Product dose omission in error [Unknown]
  - Intentional product misuse [Not Recovered/Not Resolved]
  - Drug ineffective [Not Recovered/Not Resolved]
